FAERS Safety Report 4471154-6 (Version None)
Quarter: 2004Q4

REPORT INFORMATION
  Report Type: 
  Country: None (occurrence: None)
  Receive Date: 20041008
  Receipt Date: 20040916
  Transmission Date: 20050328
  Serious: Yes (Hospitalization)
  Sender: FDA-Public Use
  Company Number: B0345872A

PATIENT
  Age: 31 Year
  Sex: Female

DRUGS (9)
  1. ALKERAN (MELPHALAN) [Suspect]
  2. PREDNISONE [Suspect]
     Dosage: CYCLIC
  3. CYCLOPHOSPHAMIDE [Suspect]
     Dosage: CYCLIC
  4. DOXORUBICIN HYDROCHLORIDE [Concomitant]
     Dosage: CYCLIC
  5. IFOSFAMIDE [Suspect]
     Dosage: CYCLIC
  6. METHOTREXATE [Suspect]
     Dosage: CYCLIC
  7. ETOPOSIDE [Suspect]
     Dosage: CYCLIC
  8. CARMUSTINE [Suspect]
  9. CYTARABINE [Suspect]

REACTIONS (8)
  - CARDIAC FAILURE CONGESTIVE [None]
  - CARDIAC MURMUR [None]
  - DILATATION VENTRICULAR [None]
  - MITRAL VALVE DISEASE [None]
  - MYOCARDIAL INFARCTION [None]
  - SERUM FERRITIN INCREASED [None]
  - SINUS TACHYCARDIA [None]
  - VENTRICULAR TACHYCARDIA [None]
